FAERS Safety Report 13171794 (Version 1)
Quarter: 2017Q1

REPORT INFORMATION
  Report Type: Spontaneous
  Country: US (occurrence: US)
  Receive Date: 20170201
  Receipt Date: 20170201
  Transmission Date: 20170428
  Serious: Yes (Other)
  Sender: FDA-Public Use
  Company Number: US-PFIZER INC-2017036820

PATIENT
  Age: 14 Year
  Weight: 102 kg

DRUGS (1)
  1. VIAGRA [Suspect]
     Active Substance: SILDENAFIL CITRATE

REACTIONS (6)
  - Intentional product misuse [Unknown]
  - Penile pain [Unknown]
  - Penis disorder [Unknown]
  - Skin discolouration [Unknown]
  - Drug administered to patient of inappropriate age [Unknown]
  - Erection increased [Unknown]

NARRATIVE: CASE EVENT DATE: 201701
